FAERS Safety Report 10091829 (Version 2)
Quarter: 2015Q3

REPORT INFORMATION
  Report Type: Spontaneous
  Country: US (occurrence: US)
  Receive Date: 20140421
  Receipt Date: 20150813
  Transmission Date: 20151125
  Serious: No
  Sender: FDA-Public Use
  Company Number: US-GILEAD-2012-0067167

PATIENT
  Age: 46 Year
  Sex: Female

DRUGS (1)
  1. LETAIRIS [Suspect]
     Active Substance: AMBRISENTAN
     Indication: PULMONARY HYPERTENSION
     Dosage: 5 MG, QD
     Route: 048
     Dates: start: 20121129

REACTIONS (7)
  - Peripheral swelling [Unknown]
  - Headache [Unknown]
  - Constipation [Unknown]
  - Heart rate increased [Unknown]
  - Dyspnoea [Unknown]
  - Nasal congestion [Unknown]
  - Hot flush [Unknown]

NARRATIVE: CASE EVENT DATE: 20121227
